FAERS Safety Report 15470726 (Version 4)
Quarter: 2019Q2

REPORT INFORMATION
  Report Type: Report from Study
  Country: US (occurrence: US)
  Receive Date: 20181005
  Receipt Date: 20190624
  Transmission Date: 20190711
  Serious: Yes (Hospitalization)
  Sender: FDA-Public Use
  Company Number: PHEH2018US041241

PATIENT
  Sex: Female

DRUGS (1)
  1. ENTRESTO [Suspect]
     Active Substance: SACUBITRIL\VALSARTAN
     Indication: CARDIAC FAILURE
     Route: 048

REACTIONS (8)
  - Ejection fraction decreased [Unknown]
  - Dizziness [Unknown]
  - Fluid retention [Unknown]
  - Abdominal distension [Unknown]
  - Weight fluctuation [Unknown]
  - Hypotension [Unknown]
  - Diverticulitis [Unknown]
  - Blood cholesterol increased [Unknown]
